FAERS Safety Report 8837935 (Version 1)
Quarter: 2012Q4

REPORT INFORMATION
  Report Type: 
  Country: US (occurrence: US)
  Receive Date: 20121012
  Receipt Date: 20121012
  Transmission Date: 20130627
  Serious: Yes (Other)
  Sender: FDA-Public Use
  Company Number: US-ROCHE-1128848

PATIENT
  Sex: Male

DRUGS (3)
  1. NUTROPIN [Suspect]
     Indication: DWARFISM
     Route: 058
  2. NUTROPIN [Suspect]
     Dosage: LAST INJECTION WAS ON 29/JUL/2001
     Route: 058
  3. RISPERDAL [Suspect]
     Indication: PRODUCT USED FOR UNKNOWN INDICATION

REACTIONS (1)
  - Convulsion [Unknown]
